FAERS Safety Report 8592667-1 (Version None)
Quarter: 2012Q3

REPORT INFORMATION
  Report Type: 
  Country: None (occurrence: None)
  Receive Date: 20120814
  Receipt Date: 20120808
  Transmission Date: 20120928
  Serious: Yes (Other)
  Sender: FDA-Public Use
  Company Number: CA-ABBOTT-12P-028-0963103-00

PATIENT
  Sex: Female
  Weight: 52.21 kg

DRUGS (2)
  1. HUMIRA [Suspect]
     Indication: CROHN'S DISEASE
     Route: 058
     Dates: start: 20070414
  2. PROZAC [Concomitant]
     Indication: DEPRESSION
     Route: 048
     Dates: start: 20040101

REACTIONS (6)
  - LOCALISED INTRAABDOMINAL FLUID COLLECTION [None]
  - ABDOMINAL PAIN [None]
  - PELVIC FLUID COLLECTION [None]
  - CROHN'S DISEASE [None]
  - PAIN [None]
  - CHOLELITHIASIS [None]
